FAERS Safety Report 10993946 (Version 2)
Quarter: 2015Q2

REPORT INFORMATION
  Report Type: Spontaneous
  Country: US (occurrence: US)
  Receive Date: 20150407
  Receipt Date: 20150414
  Transmission Date: 20150821
  Serious: Yes (Hospitalization, Other)
  Sender: FDA-Public Use
  Company Number: US-SUN PHARMACEUTICAL INDUSTRIES LTD-2015US-94880

PATIENT
  Sex: Female

DRUGS (1)
  1. ABSORICA [Suspect]
     Active Substance: ISOTRETINOIN
     Indication: PRODUCT USED FOR UNKNOWN INDICATION
     Dosage: 40 MG IN THE MORNING AND 10 MG IN EVENING
     Route: 065
     Dates: start: 201411

REACTIONS (5)
  - Headache [Unknown]
  - Confusional state [Unknown]
  - Feeling abnormal [Unknown]
  - Mydriasis [Unknown]
  - Vision blurred [Unknown]
